FAERS Safety Report 4763683-2 (Version None)
Quarter: 2005Q3

REPORT INFORMATION
  Report Type: 
  Country: None (occurrence: None)
  Receive Date: 20050908
  Receipt Date: 20050829
  Transmission Date: 20060218
  Serious: Yes (Death, Hospitalization)
  Sender: FDA-Public Use
  Company Number: DEPFP-S-20050024

PATIENT
  Age: 64 Year
  Sex: Male

DRUGS (4)
  1. VINORELBINE [Suspect]
     Indication: NON-SMALL CELL LUNG CANCER
     Route: 042
     Dates: start: 20050407, end: 20050510
  2. CISPLATIN [Suspect]
     Indication: NON-SMALL CELL LUNG CANCER
     Dosage: 50MGM2 CYCLIC
     Route: 042
     Dates: start: 20050131, end: 20050510
  3. PACLITAXEL [Suspect]
     Indication: NON-SMALL CELL LUNG CANCER
     Route: 042
     Dates: start: 20050131, end: 20050314
  4. RADIATION THERAPY [Concomitant]
     Dates: start: 20050406, end: 20050624

REACTIONS (9)
  - GENERAL PHYSICAL HEALTH DETERIORATION [None]
  - HAEMODIALYSIS [None]
  - MULTI-ORGAN FAILURE [None]
  - RADIATION OESOPHAGITIS [None]
  - RADIATION PNEUMONITIS [None]
  - RENAL IMPAIRMENT [None]
  - RESPIRATORY FAILURE [None]
  - STENOTROPHOMONAS INFECTION [None]
  - THROMBOPHLEBITIS [None]
